FAERS Safety Report 6120734-0 (Version None)
Quarter: 2009Q1

REPORT INFORMATION
  Report Type: 
  Country: None (occurrence: None)
  Receive Date: 20090317
  Receipt Date: 20090310
  Transmission Date: 20090719
  Serious: Yes (Hospitalization)
  Sender: FDA-Public Use
  Company Number: US-ELI_LILLY_AND_COMPANY-US200903002727

PATIENT
  Sex: Male
  Weight: 79.365 kg

DRUGS (17)
  1. BYETTA [Suspect]
     Dosage: 5 UG, 2/D
     Route: 058
     Dates: start: 20080201, end: 20080301
  2. BYETTA [Suspect]
     Dosage: 10 UG, 2/D
     Route: 058
     Dates: start: 20080301
  3. METFORMIN HCL [Concomitant]
     Indication: TYPE 2 DIABETES MELLITUS
     Dosage: 2000 MG, DAILY (1/D)
     Route: 048
  4. AVANDIA [Concomitant]
     Indication: TYPE 2 DIABETES MELLITUS
     Dosage: 8 MG, DAILY (1/D)
     Route: 048
     Dates: end: 20080401
  5. AVANDIA [Concomitant]
     Dosage: 4 MG, DAILY (1/D)
     Route: 048
     Dates: start: 20080401
  6. STARLIX [Concomitant]
     Indication: TYPE 2 DIABETES MELLITUS
     Dosage: 180 MG, DAILY (1/D)
     Route: 048
     Dates: end: 20080401
  7. STARLIX [Concomitant]
     Dosage: 120 MG, DAILY (1/D)
     Route: 048
     Dates: start: 20080401
  8. NASONEX [Concomitant]
     Indication: RHINITIS
     Dosage: 50 UG, DAILY (1/D)
     Route: 045
  9. PATANOL [Concomitant]
     Indication: HYPERSENSITIVITY
     Dosage: 0.1 %, OTHER
     Route: 047
  10. VYTORIN [Concomitant]
     Indication: BLOOD CHOLESTEROL INCREASED
     Dosage: UNK, DAILY (1/D)
     Route: 048
  11. HYZAAR [Concomitant]
     Indication: HYPERTENSION
     Dosage: UNK, DAILY (1/D)
     Route: 048
  12. TOPROL-XL [Concomitant]
     Indication: HYPERTENSION
     Dosage: 50 MG, DAILY (1/D)
     Route: 048
  13. CLONAZEPAM [Concomitant]
     Indication: SLEEP DISORDER
     Dosage: 0.5 MG, DAILY (1/D)
     Route: 048
  14. ASPIRIN [Concomitant]
     Dosage: UNK, UNKNOWN
  15. CENTRUM SILVER [Concomitant]
     Dosage: UNK, UNKNOWN
  16. VITAMIN C                          /00008001/ [Concomitant]
     Dosage: UNK, UNKNOWN
  17. TYLENOL (CAPLET) [Concomitant]
     Indication: ARTHRITIS
     Dosage: 1300 MG, DAILY (1/D)

REACTIONS (15)
  - AMNESIA [None]
  - BALANCE DISORDER [None]
  - BLOOD DISORDER [None]
  - BLOOD GLUCOSE DECREASED [None]
  - CEREBROVASCULAR ACCIDENT [None]
  - DEHYDRATION [None]
  - DRY SKIN [None]
  - EPISTAXIS [None]
  - FATIGUE [None]
  - GASTRITIS [None]
  - NAUSEA [None]
  - PRODUCT QUALITY ISSUE [None]
  - TRANSIENT ISCHAEMIC ATTACK [None]
  - VOMITING [None]
  - WEIGHT DECREASED [None]
